FAERS Safety Report 6704094-X (Version None)
Quarter: 2010Q2

REPORT INFORMATION
  Report Type: 
  Country: None (occurrence: None)
  Receive Date: 20100430
  Receipt Date: 20100420
  Transmission Date: 20101027
  Serious: Yes (Other)
  Sender: FDA-Public Use
  Company Number: HR-WATSON-2010-04687

PATIENT
  Age: 74 Year
  Sex: Male

DRUGS (1)
  1. RISPERIDONE [Suspect]
     Indication: MAJOR DEPRESSION
     Dosage: 2 MG, UNKNOWN
     Route: 065

REACTIONS (1)
  - DRUG INEFFECTIVE [None]
